FAERS Safety Report 5661216-X (Version None)
Quarter: 2008Q1

REPORT INFORMATION
  Report Type: 
  Country: None (occurrence: None)
  Receive Date: 20080312
  Receipt Date: 20080221
  Transmission Date: 20080703
  Serious: Yes (Hospitalization, Disabling, Congenital Anomaly)
  Sender: FDA-Public Use
  Company Number: A0681866A

PATIENT
  Sex: Male
  Weight: 3.9 kg

DRUGS (9)
  1. PAXIL [Suspect]
     Indication: DRUG USE FOR UNKNOWN INDICATION
     Dates: start: 20021101, end: 20070101
  2. PAROXETINE HCL [Suspect]
     Indication: DRUG USE FOR UNKNOWN INDICATION
     Dates: start: 20021101, end: 20070101
  3. VITAMIN TAB [Concomitant]
  4. WELLBUTRIN SR [Concomitant]
     Dosage: 150MG TWICE PER DAY
  5. TRAZODONE HCL [Concomitant]
     Dosage: 150MG AS REQUIRED
  6. LEVOTHYROXINE SODIUM [Concomitant]
  7. PROPRANOLOL [Concomitant]
  8. ALBUTEROL [Concomitant]
  9. COMBIVENT [Concomitant]
     Dates: start: 20060201

REACTIONS (12)
  - ASTHMA [None]
  - BRONCHIOLITIS [None]
  - CYANOSIS [None]
  - DRUG EXPOSURE DURING PREGNANCY [None]
  - DYSPNOEA [None]
  - EPILEPSY [None]
  - HYPOTHYROIDISM [None]
  - PULMONARY HYPERTENSION [None]
  - TRANSIENT TACHYPNOEA OF THE NEWBORN [None]
  - VENTRICULAR SEPTAL DEFECT [None]
  - VISUAL DISTURBANCE [None]
  - WHEEZING [None]
